FAERS Safety Report 8619838-X (Version None)
Quarter: 2012Q3

REPORT INFORMATION
  Report Type: 
  Country: None (occurrence: None)
  Receive Date: 20120824
  Receipt Date: 20120821
  Transmission Date: 20120928
  Serious: Yes (Other)
  Sender: FDA-Public Use
  Company Number: CN-PFIZER INC-2012106588

PATIENT
  Age: 60 Year
  Sex: Male

DRUGS (2)
  1. PIPERACILLIN AND TAZOBACTAM [Suspect]
     Dosage: 2/0.25 G EVERY 8 HOURS
  2. GENTAMICIN [Concomitant]
     Dosage: UNK

REACTIONS (3)
  - BONE MARROW FAILURE [None]
  - PLATELET COUNT DECREASED [None]
  - HAEMOGLOBIN DECREASED [None]
